FAERS Safety Report 15311624 (Version 1)
Quarter: 2018Q3

REPORT INFORMATION
  Report Type: Spontaneous
  Country: US (occurrence: US)
  Receive Date: 20180823
  Receipt Date: 20180823
  Transmission Date: 20181010
  Serious: No
  Sender: FDA-Public Use
  Company Number: US-COLLEGIUM PHARMACEUTICAL, INC.-2018CGM00253

PATIENT
  Sex: Female

DRUGS (1)
  1. XTAMPZA ER [Suspect]
     Active Substance: OXYCODONE
     Dosage: 27 MG, 2X/DAY
     Route: 048

REACTIONS (4)
  - Feeling abnormal [Unknown]
  - Autoscopy [Unknown]
  - Headache [Unknown]
  - Product substitution issue [Recovered/Resolved]
